FAERS Safety Report 24668594 (Version 1)
Quarter: 2024Q4

REPORT INFORMATION
  Report Type: Spontaneous
  Country: IT (occurrence: IT)
  Receive Date: 20241127
  Receipt Date: 20241127
  Transmission Date: 20250115
  Serious: Yes (Life-Threatening, Hospitalization, Disabling)
  Sender: ROCHE
  Company Number: None

PATIENT
  Age: 66 Year
  Sex: Male
  Weight: 85 kg

DRUGS (4)
  1. TECENTRIQ [Suspect]
     Active Substance: ATEZOLIZUMAB
     Indication: Hepatocellular carcinoma
     Dosage: 1200 MG EVERY 21 DAYS
     Route: 042
     Dates: start: 20240719, end: 20240809
  2. BEVACIZUMAB [Suspect]
     Active Substance: BEVACIZUMAB
     Indication: Hepatocellular carcinoma
     Dosage: 15 MG/KG OGNI 21 GIORNI
     Route: 042
     Dates: start: 20240719, end: 20240809
  3. ENOXAPARIN [Concomitant]
     Active Substance: ENOXAPARIN
     Route: 058
     Dates: start: 20240710, end: 20241112
  4. ELIQUIS [Concomitant]
     Active Substance: APIXABAN
     Dosage: 2.5 MG X 2 AL GIORNO
     Route: 048
     Dates: start: 20240326, end: 20240710

REACTIONS (5)
  - Intestinal infarction [Recovered/Resolved with Sequelae]
  - Septic shock [Recovering/Resolving]
  - Intestinal infarction [Recovered/Resolved with Sequelae]
  - Hypovolaemic shock [Recovered/Resolved]
  - Abdominal wound dehiscence [Not Recovered/Not Resolved]

NARRATIVE: CASE EVENT DATE: 20240816
